FAERS Safety Report 22079219 (Version 2)
Quarter: 2023Q2

REPORT INFORMATION
  Report Type: Spontaneous
  Country: NL (occurrence: NL)
  Receive Date: 20230309
  Receipt Date: 20230424
  Transmission Date: 20230721
  Serious: No
  Sender: FDA-Public Use
  Company Number: None

PATIENT
  Sex: Female
  Weight: 62 kg

DRUGS (2)
  1. TRIMETHOPRIM [Suspect]
     Active Substance: TRIMETHOPRIM
     Indication: Cystitis
     Dosage: 100 MILLIGRAM DAILY; 1X PER DAY 1 TABLET IN THE EVENING, BRAND NAME NOT SPECIFIED
     Route: 065
     Dates: start: 20230104, end: 20230116
  2. OPDIVO [Suspect]
     Active Substance: NIVOLUMAB
     Indication: Metastatic malignant melanoma
     Dosage: UNKNOWN. KNOWN TO ONCOLOGY XX, INFOPL CONC, INFVLST CONC,VIAL 4ML
     Route: 065
     Dates: start: 20221004, end: 20221227

REACTIONS (5)
  - Mouth injury [Recovered/Resolved]
  - Pruritus [Recovered/Resolved]
  - Pain [Recovered/Resolved]
  - Skin abrasion [Recovered/Resolved]
  - Hypoacusis [Recovered/Resolved]
